FAERS Safety Report 13097794 (Version 1)
Quarter: 2017Q1

REPORT INFORMATION
  Report Type: Report from Study
  Country: US (occurrence: US)
  Receive Date: 20170109
  Receipt Date: 20170109
  Transmission Date: 20170428
  Serious: Yes (Other)
  Sender: FDA-Public Use
  Company Number: US-PFIZER INC-2017002585

PATIENT

DRUGS (1)
  1. DOCETAXEL. [Suspect]
     Active Substance: DOCETAXEL
     Indication: NASOPHARYNGEAL CANCER RECURRENT
     Dosage: UNK, CYCLIC

REACTIONS (4)
  - Mucosal ulceration [Unknown]
  - Dysphagia [Not Recovered/Not Resolved]
  - Osteoradionecrosis [Unknown]
  - Soft tissue necrosis [Unknown]
